FAERS Safety Report 15239560 (Version 1)
Quarter: 2018Q3

REPORT INFORMATION
  Report Type: Spontaneous
  Country: US (occurrence: US)
  Receive Date: 20180803
  Receipt Date: 20180803
  Transmission Date: 20181010
  Serious: Yes (Hospitalization, Other)
  Sender: FDA-Public Use
  Company Number: US-OTSUKA-2018_017053

PATIENT
  Sex: Male

DRUGS (2)
  1. ABILIFY [Suspect]
     Active Substance: ARIPIPRAZOLE
     Indication: BIPOLAR DISORDER
     Dosage: UNK
     Route: 065
     Dates: start: 201301, end: 201512
  2. ABILIFY [Suspect]
     Active Substance: ARIPIPRAZOLE
     Indication: MAJOR DEPRESSION

REACTIONS (10)
  - Gambling disorder [Unknown]
  - Economic problem [Unknown]
  - Loss of employment [Unknown]
  - Mental disorder [Unknown]
  - Divorced [Unknown]
  - Hypersexuality [Unknown]
  - Suicide attempt [Unknown]
  - Suicidal ideation [Unknown]
  - Compulsive shopping [Unknown]
  - Bankruptcy [Unknown]
